FAERS Safety Report 4567730-2 (Version None)
Quarter: 2005Q1

REPORT INFORMATION
  Report Type: 
  Country: None (occurrence: None)
  Receive Date: 20050127
  Receipt Date: 20050117
  Transmission Date: 20050727
  Serious: Yes (Other)
  Sender: FDA-Public Use
  Company Number: 2005016316

PATIENT
  Sex: Female

DRUGS (7)
  1. NEURONTIN [Suspect]
     Indication: NEURALGIA
     Dosage: (3 IN 1 D), ORAL
     Route: 048
     Dates: start: 20011101
  2. PREDNISONE [Concomitant]
  3. ALL OTEHR NON-THERAPEUTIC PRODUCTS (ALL OTHER NON-THERAPEUTIC PRODUCTS [Concomitant]
  4. ALL OTEHR THERAPEUTIC PRODUCTS (ALL OTHER THERAPEUTIC [Concomitant]
  5. AMITRIPTYLINE HYDROCHLORIDE (AMITRIPTYLINE HYDROCHLORIDE0 [Concomitant]
  6. CYCLOBENZAPRINE HYDROCHLORIDE [Concomitant]
  7. CLONAZEPAM [Concomitant]

REACTIONS (15)
  - APPETITE DISORDER [None]
  - ASTHMA [None]
  - BLOOD GLUCOSE INCREASED [None]
  - BLOOD PRESSURE INCREASED [None]
  - COMPLEX REGIONAL PAIN SYNDROME [None]
  - CONDITION AGGRAVATED [None]
  - DRUG INEFFECTIVE [None]
  - DRUG WITHDRAWAL SYNDROME [None]
  - FATIGUE [None]
  - FIBROMYALGIA [None]
  - HERNIA REPAIR [None]
  - INCISION SITE COMPLICATION [None]
  - MUSCLE ATROPHY [None]
  - NAUSEA [None]
  - WEIGHT INCREASED [None]
